FAERS Safety Report 9771187 (Version 1)
Quarter: 2013Q4

REPORT INFORMATION
  Report Type: Spontaneous
  Country: US (occurrence: US)
  Receive Date: 20131218
  Receipt Date: 20131218
  Transmission Date: 20140711
  Serious: Yes (Hospitalization)
  Sender: FDA-Public Use
  Company Number: US-B.I. PHARMACEUTICALS,INC./RIDGEFIELD-2013-BI-41839BP

PATIENT
  Age: 74 Year
  Sex: Male

DRUGS (3)
  1. PRADAXA [Suspect]
     Indication: ATRIAL FIBRILLATION
     Dosage: 300 MG
     Route: 048
     Dates: end: 201312
  2. ASPIRIN [Concomitant]
     Indication: ANTIPLATELET THERAPY
     Dates: end: 201312
  3. PLAVIX [Concomitant]
     Indication: ANTIPLATELET THERAPY
     Dates: end: 201312

REACTIONS (1)
  - Gastrointestinal haemorrhage [Recovered/Resolved]
